FAERS Safety Report 9809194 (Version 2)
Quarter: 2014Q1

REPORT INFORMATION
  Report Type: Spontaneous
  Country: US (occurrence: US)
  Receive Date: 20140110
  Receipt Date: 20140204
  Transmission Date: 20141002
  Serious: No
  Sender: FDA-Public Use
  Company Number: US-009507513-1401USA002518

PATIENT
  Age: 76 Year
  Sex: Male

DRUGS (2)
  1. DULERA [Suspect]
     Indication: CHRONIC OBSTRUCTIVE PULMONARY DISEASE
     Dosage: TWO PUFFS EVERY 12 HOURS
     Route: 055
     Dates: start: 20131210
  2. IBUTEROL [Concomitant]

REACTIONS (4)
  - Skin odour abnormal [Recovered/Resolved]
  - Fatigue [Recovered/Resolved]
  - Decreased appetite [Recovered/Resolved]
  - Depressive symptom [Recovered/Resolved]
